FAERS Safety Report 6520903-1 (Version None)
Quarter: 2009Q4

REPORT INFORMATION
  Report Type: 
  Country: None (occurrence: None)
  Receive Date: 20091229
  Receipt Date: 20091217
  Transmission Date: 20100525
  Serious: Yes (Life-Threatening, Hospitalization)
  Sender: FDA-Public Use
  Company Number: GB-PFIZER INC-2007047080

PATIENT
  Age: 65 Year
  Sex: Female
  Weight: 67 kg

DRUGS (8)
  1. SULFASALAZINE [Suspect]
     Indication: RHEUMATOID ARTHRITIS
     Route: 048
     Dates: start: 20070312, end: 20070417
  2. ACETYLSALICYLIC ACID SRT [Concomitant]
     Indication: HYPERTENSION
     Dosage: 75 MG, 1X/DAY
     Dates: start: 20030101
  3. PREDNISOLONE [Concomitant]
     Indication: RETROPERITONEAL FIBROSIS
     Dosage: 5 MG, 1X/DAY
     Route: 048
  4. PREDNISOLONE [Concomitant]
     Indication: RHEUMATOID ARTHRITIS
  5. ROSUVASTATIN [Concomitant]
     Indication: NAUSEA
     Dosage: 5 MG, 1X/DAY
     Route: 048
     Dates: start: 20061001
  6. ROSUVASTATIN [Concomitant]
     Indication: MALAISE
  7. METHOTREXATE [Concomitant]
     Indication: RHEUMATOID ARTHRITIS
     Dosage: 5 MG, WEEKLY
     Dates: start: 20060711, end: 20070101
  8. ATENOLOL [Concomitant]
     Indication: HYPERTENSION
     Dosage: UNK TWICE A DAY
     Route: 048
     Dates: end: 20040801

REACTIONS (2)
  - NEUTROPENIA [None]
  - SEPSIS [None]
